FAERS Safety Report 16628104 (Version 1)
Quarter: 2019Q3

REPORT INFORMATION
  Report Type: Spontaneous
  Country: US (occurrence: US)
  Receive Date: 20190724
  Receipt Date: 20190724
  Transmission Date: 20191004
  Serious: No
  Sender: FDA-Public Use
  Company Number: US-TEVA-2019-US-1080280

PATIENT
  Sex: Female

DRUGS (1)
  1. SUCRALFATE TABLET [Suspect]
     Active Substance: SUCRALFATE
     Indication: GASTROINTESTINAL DISORDER
     Dosage: FORM STRENGTH: 1, UNIT NOT REPORTED
     Route: 065
     Dates: start: 20190712

REACTIONS (3)
  - Migraine [Unknown]
  - Malaise [Unknown]
  - Chills [Unknown]

NARRATIVE: CASE EVENT DATE: 20190712
